FAERS Safety Report 15719020 (Version 1)
Quarter: 2018Q4

REPORT INFORMATION
  Report Type: Spontaneous
  Country: IN (occurrence: IN)
  Receive Date: 20181213
  Receipt Date: 20181213
  Transmission Date: 20190205
  Serious: Yes (Other)
  Sender: FDA-Public Use
  Company Number: IN-PFIZER INC-2018510226

PATIENT
  Age: 60 Year
  Sex: Male

DRUGS (2)
  1. CEFOPERAZONE SODIUM [Suspect]
     Active Substance: CEFOPERAZONE SODIUM
     Indication: CHOLECYSTECTOMY
     Dosage: UNK
  2. CLINDAMYCIN HCL [Suspect]
     Active Substance: CLINDAMYCIN HYDROCHLORIDE
     Indication: CHOLECYSTECTOMY
     Dosage: UNK

REACTIONS (3)
  - Urinary tract infection fungal [Recovered/Resolved]
  - Trichosporon infection [Recovered/Resolved]
  - Device related infection [Recovered/Resolved]
